FAERS Safety Report 9119640 (Version 3)
Quarter: 2013Q2

REPORT INFORMATION
  Report Type: Spontaneous
  Country: US (occurrence: US)
  Receive Date: 20130226
  Receipt Date: 20130409
  Transmission Date: 20140414
  Serious: No
  Sender: FDA-Public Use
  Company Number: US-009507513-1302USA011094

PATIENT
  Age: 76 Year
  Sex: Female

DRUGS (3)
  1. AZASITE [Suspect]
     Indication: DRY EYE
     Dosage: ONE DROP INTO EACH EYE TWICE A DAY FOR SEVEN DAYS
     Route: 047
     Dates: start: 20100128
  2. PROTONA [Concomitant]
  3. AMLODIPINE [Concomitant]

REACTIONS (5)
  - Eye irritation [Unknown]
  - Inappropriate schedule of drug administration [Unknown]
  - Drug dose omission [Unknown]
  - Product packaging quantity issue [Unknown]
  - Product dropper issue [Unknown]
